FAERS Safety Report 6594349-4 (Version None)
Quarter: 2010Q1

REPORT INFORMATION
  Report Type: 
  Country: None (occurrence: None)
  Receive Date: 20100222
  Receipt Date: 20100209
  Transmission Date: 20100710
  Serious: Yes (Death)
  Sender: FDA-Public Use
  Company Number: GB-TYCO HEALTHCARE/MALLINCKRODT-T201000639

PATIENT
  Age: 45 Year
  Sex: Female

DRUGS (7)
  1. TEMAZEPAM [Suspect]
     Dosage: UNK
  2. TRAMADOL HCL [Suspect]
     Dosage: UNK
  3. OXYNORM [Suspect]
     Dosage: UNK
  4. CODEINE SULFATE [Suspect]
     Dosage: UNK
  5. ORAMORPH SR [Suspect]
     Dosage: UNK
  6. AMITRIPTYLINE HCL [Suspect]
     Dosage: UNK
  7. ACETAMINOPHEN [Suspect]
     Dosage: UNK

REACTIONS (1)
  - MULTIPLE DRUG OVERDOSE [None]
